FAERS Safety Report 21947046 (Version 1)
Quarter: 2023Q1

REPORT INFORMATION
  Report Type: Spontaneous
  Country: US (occurrence: US)
  Receive Date: 20230202
  Receipt Date: 20230202
  Transmission Date: 20230418
  Serious: No
  Sender: FDA-Public Use
  Company Number: US-GALDERMA-US2022012689

PATIENT

DRUGS (4)
  1. SOOLANTRA [Suspect]
     Active Substance: IVERMECTIN
     Indication: Demodicidosis
     Dosage: 1 DOSAGE FORM
     Route: 061
  2. SOOLANTRA [Suspect]
     Active Substance: IVERMECTIN
     Indication: Delusion of parasitosis
  3. IVERMECTIN [Concomitant]
     Active Substance: IVERMECTIN
     Indication: Demodicidosis
     Route: 048
  4. IVERMECTIN [Concomitant]
     Active Substance: IVERMECTIN
     Indication: Delusion of parasitosis

REACTIONS (2)
  - Intentional product use issue [Recovered/Resolved]
  - Drug ineffective for unapproved indication [Recovered/Resolved]
